FAERS Safety Report 24708071 (Version 1)
Quarter: 2024Q4

REPORT INFORMATION
  Report Type: Spontaneous
  Country: US (occurrence: US)
  Receive Date: 20241206
  Receipt Date: 20241206
  Transmission Date: 20250115
  Serious: No
  Sender: JOHNSON AND JOHNSON
  Company Number: US-JNJFOC-20240856441

PATIENT
  Sex: Female

DRUGS (1)
  1. TYLENOL EXTRA STRENGTH [Suspect]
     Active Substance: ACETAMINOPHEN
     Indication: Spinal stenosis
     Dosage: 4 CAPLETS PER DAY
     Route: 048

REACTIONS (4)
  - Sensory disturbance [Unknown]
  - Poor quality product administered [Unknown]
  - Product complaint [Unknown]
  - Product physical issue [Unknown]
